FAERS Safety Report 5736375-0 (Version None)
Quarter: 2008Q2

REPORT INFORMATION
  Report Type: 
  Country: None (occurrence: None)
  Receive Date: 20080508
  Receipt Date: 20080423
  Transmission Date: 20081010
  Serious: Yes (Other)
  Sender: FDA-Public Use
  Company Number: 2008S1007644

PATIENT
  Age: 43 Year
  Sex: Female

DRUGS (2)
  1. OMEPRAZOLE [Suspect]
     Indication: GASTRITIS
     Dosage: 40 MG; ORAL
     Route: 048
     Dates: start: 20080410, end: 20080411
  2. METAMIZOLE [Concomitant]

REACTIONS (6)
  - DYSPHONIA [None]
  - DYSPNOEA [None]
  - MUSCLE TIGHTNESS [None]
  - PARAESTHESIA ORAL [None]
  - PHARYNGOLARYNGEAL PAIN [None]
  - TRACHEAL STENOSIS [None]
